FAERS Safety Report 21505331 (Version 2)
Quarter: 2022Q4

REPORT INFORMATION
  Report Type: Spontaneous
  Country: EG (occurrence: EG)
  Receive Date: 20221026
  Receipt Date: 20221107
  Transmission Date: 20230113
  Serious: Yes (Hospitalization, Other)
  Sender: FDA-Public Use
  Company Number: EG-NOVOPROD-969224

PATIENT
  Age: 71 Year
  Sex: Female
  Weight: 110 kg

DRUGS (8)
  1. INSULIN HUMAN [Suspect]
     Active Substance: INSULIN HUMAN
     Dosage: UNK
     Route: 058
  2. INSULIN HUMAN [Suspect]
     Active Substance: INSULIN HUMAN
     Indication: Diabetes mellitus
     Dosage: 80 IU, QD (50 U MORNING AND 30 U NIGHT)
     Route: 058
  3. ANGIOFOX [Concomitant]
     Indication: Cardiac disorder
     Dosage: 25 MG, QD
     Route: 048
     Dates: start: 202206
  4. VASTAREL [Concomitant]
     Active Substance: TRIMETAZIDINE DIHYDROCHLORIDE
     Indication: Myocardial infarction
     Dosage: 2 TAB/ DAY
     Route: 048
     Dates: start: 202206
  5. ERYTHROPOIETIN [Concomitant]
     Active Substance: ERYTHROPOIETIN
     Indication: Anaemia
     Dosage: 4000 IU, QW
     Route: 058
     Dates: start: 2017
  6. PANTOPRAZOLE SODIUM [Concomitant]
     Active Substance: PANTOPRAZOLE SODIUM
     Indication: Gastric pH decreased
     Dosage: 1 TAB/DAY (STARTED FROM 5 YEARS AGO)
     Route: 048
  7. INSULIN NOS [Concomitant]
     Active Substance: INSULIN NOS
  8. CIDOPHAGE [Concomitant]
     Indication: Gestational diabetes
     Dosage: UNK

REACTIONS (13)
  - COVID-19 [Recovered/Resolved]
  - Renal failure [Not Recovered/Not Resolved]
  - Hypotension [Not Recovered/Not Resolved]
  - Visual impairment [Not Recovered/Not Resolved]
  - Cataract [Not Recovered/Not Resolved]
  - Glaucoma [Not Recovered/Not Resolved]
  - Poor peripheral circulation [Not Recovered/Not Resolved]
  - Gout [Not Recovered/Not Resolved]
  - Obesity [Not Recovered/Not Resolved]
  - Chondropathy [Recovered/Resolved]
  - Gastrooesophageal reflux disease [Not Recovered/Not Resolved]
  - Urinary tract infection [Not Recovered/Not Resolved]
  - Coronary artery disease [Not Recovered/Not Resolved]

NARRATIVE: CASE EVENT DATE: 20120101
